FAERS Safety Report 9290540 (Version 1)
Quarter: 2013Q2

REPORT INFORMATION
  Report Type: Spontaneous
  Country: US (occurrence: US)
  Receive Date: 20130515
  Receipt Date: 20130515
  Transmission Date: 20140414
  Serious: Yes (Other)
  Sender: FDA-Public Use
  Company Number: US-PFIZER INC-2013146166

PATIENT
  Age: 47 Year
  Sex: Male

DRUGS (8)
  1. XELJANZ [Suspect]
     Dosage: 5 MG, 2X/DAY
     Route: 048
  2. FLOVENT [Concomitant]
     Dosage: 250 UG, UNK
  3. FLONASE [Concomitant]
     Dosage: 0.05 %, UNK
  4. ALLEGRA [Concomitant]
     Dosage: 180 MG, UNK
  5. BYSTOLIC [Concomitant]
     Dosage: 2.5 MG, UNK
  6. ALEVE [Concomitant]
     Dosage: 220 MG, UNK
  7. LEFLUNOMIDE [Concomitant]
     Dosage: 10 MG, UNK
  8. PREDNISONE [Concomitant]
     Dosage: 1 MG, UNK

REACTIONS (7)
  - Infection [Recovered/Resolved]
  - Cystitis [Recovered/Resolved]
  - Lung infection [Recovered/Resolved]
  - Labyrinthitis [Recovered/Resolved]
  - Dyspnoea [Unknown]
  - Pulmonary function test decreased [Unknown]
  - Sinus disorder [Unknown]
